FAERS Safety Report 4392586-0 (Version None)
Quarter: 2004Q3

REPORT INFORMATION
  Report Type: 
  Country: None (occurrence: None)
  Receive Date: 20040702
  Receipt Date: 20040310
  Transmission Date: 20050211
  Serious: Yes (Other)
  Sender: FDA-Public Use
  Company Number: 2004UW03680

PATIENT
  Age: 78 Year
  Sex: Female

DRUGS (6)
  1. CRESTOR [Suspect]
     Dosage: 5 MG PO
     Route: 048
     Dates: start: 20040128
  2. ZETIA [Concomitant]
  3. ARANESP [Concomitant]
  4. PRILOSEC [Concomitant]
  5. DIOVAN [Concomitant]
  6. MULTIVITAMINS WITH FOLATE [Concomitant]

REACTIONS (1)
  - PERIPHERAL ISCHAEMIA [None]
